FAERS Safety Report 4796483-8 (Version None)
Quarter: 2005Q4

REPORT INFORMATION
  Report Type: 
  Country: None (occurrence: None)
  Receive Date: 20051006
  Receipt Date: 20051006
  Transmission Date: 20060501
  Serious: Yes (Life-Threatening, Hospitalization)
  Sender: FDA-Public Use
  Company Number: None

PATIENT
  Age: 49 Year
  Sex: Female
  Weight: 50 kg

DRUGS (7)
  1. ESCITALOPRAM OXALATE [Suspect]
     Indication: SUICIDE ATTEMPT
     Dosage: PO TID
     Route: 048
  2. BUPROPION HCL [Suspect]
     Dosage: PO
     Route: 048
  3. FOLIC ACID [Concomitant]
  4. THIAMINE [Concomitant]
  5. M.V.I. [Concomitant]
  6. PANCRELIPASE [Concomitant]
  7. OXAZEPAM [Concomitant]

REACTIONS (7)
  - DRUG SCREEN POSITIVE [None]
  - ELECTROCARDIOGRAM ABNORMAL [None]
  - ELECTROCARDIOGRAM QT PROLONGED [None]
  - HEART RATE IRREGULAR [None]
  - INTENTIONAL DRUG MISUSE [None]
  - MULTIPLE DRUG OVERDOSE [None]
  - SYNCOPE [None]
